FAERS Safety Report 9060079 (Version 1)
Quarter: 2013Q1

REPORT INFORMATION
  Report Type: Spontaneous
  Country: US (occurrence: US)
  Receive Date: 20130212
  Receipt Date: 20130212
  Transmission Date: 20140127
  Serious: Yes (Hospitalization)
  Sender: FDA-Public Use
  Company Number: US-BAYER-2013-015795

PATIENT
  Age: 45 Year
  Sex: Female

DRUGS (6)
  1. YAZ [Suspect]
     Indication: POLYCYSTIC OVARIES
  2. SYEDA [Suspect]
  3. ZYRTEC-D [Concomitant]
  4. PRILOSEC [Concomitant]
  5. COREG [Concomitant]
  6. HYZAAR [Concomitant]

REACTIONS (1)
  - Cerebrovascular accident [None]
